FAERS Safety Report 17166458 (Version 1)
Quarter: 2019Q4

REPORT INFORMATION
  Report Type: Spontaneous
  Country: DE (occurrence: DE)
  Receive Date: 20191217
  Receipt Date: 20191217
  Transmission Date: 20200122
  Serious: Yes (Hospitalization)
  Sender: FDA-Public Use
  Company Number: NVSC2019DE064244

PATIENT
  Age: 74 Year
  Sex: Female

DRUGS (2)
  1. TERIPARATIDE [Suspect]
     Active Substance: TERIPARATIDE
     Indication: OSTEOPOROSIS
     Dosage: QD (DISPOSABLE PEN)
     Route: 058
     Dates: start: 20190101
  2. ZOLPIDEM [Suspect]
     Active Substance: ZOLPIDEM TARTRATE
     Indication: SLEEP DISORDER
     Dosage: 0.5 DF
     Route: 065

REACTIONS (11)
  - Head injury [Unknown]
  - Faeces discoloured [Unknown]
  - Haematemesis [Unknown]
  - Arrhythmia [Recovering/Resolving]
  - Gastrointestinal haemorrhage [Unknown]
  - Contusion [Unknown]
  - Fall [Unknown]
  - Fall [Unknown]
  - Pain in extremity [Unknown]
  - Contusion [Unknown]
  - Cardiac output decreased [Recovering/Resolving]

NARRATIVE: CASE EVENT DATE: 201908
